FAERS Safety Report 25204769 (Version 2)
Quarter: 2025Q2

REPORT INFORMATION
  Report Type: Spontaneous
  Country: US (occurrence: US)
  Receive Date: 20250416
  Receipt Date: 20250508
  Transmission Date: 20250717
  Serious: No
  Sender: ROCHE
  Company Number: US-ROCHE-10000249724

PATIENT
  Age: 18 Year
  Sex: Female
  Weight: 76.52 kg

DRUGS (7)
  1. XOLAIR [Suspect]
     Active Substance: OMALIZUMAB
     Indication: Asthma
     Route: 050
  2. XOLAIR [Suspect]
     Active Substance: OMALIZUMAB
     Indication: Urticaria aquagenic
  3. TACROLIMUS [Concomitant]
     Active Substance: TACROLIMUS
  4. BETA ALANINE [Concomitant]
  5. DUPIXENT [Concomitant]
     Active Substance: DUPILUMAB
     Indication: Urticaria aquagenic
     Dates: start: 202205
  6. SYMBICORT [Concomitant]
     Active Substance: BUDESONIDE\FORMOTEROL FUMARATE DIHYDRATE
  7. ATROVENT [Concomitant]
     Active Substance: IPRATROPIUM BROMIDE

REACTIONS (2)
  - Drug ineffective [Unknown]
  - No adverse event [Unknown]
